FAERS Safety Report 25885991 (Version 1)
Quarter: 2025Q4

REPORT INFORMATION
  Report Type: Spontaneous
  Country: US (occurrence: None)
  Receive Date: 20251006
  Receipt Date: 20251006
  Transmission Date: 20260117
  Serious: Yes (Death)
  Sender: FDA-CTU
  Company Number: None

PATIENT
  Age: 65 Year
  Sex: Female

DRUGS (10)
  1. IBRANCE [Suspect]
     Active Substance: PALBOCICLIB
     Indication: Breast cancer
     Dosage: 1 TABLET QD FOR 21 DAYS, 7 DAYS OFF
     Dates: start: 20250218
  2. CAPECITABINE S00MG TABLETS [Concomitant]
  3. BENZONATATE [Concomitant]
     Active Substance: BENZONATATE
  4. VITAMIN B12 2000MCG ER TABLETS [Concomitant]
  5. GLIMEPIRIDE [Concomitant]
     Active Substance: GLIMEPIRIDE
  6. PREDNISONE [Concomitant]
     Active Substance: PREDNISONE
  7. PANTOPRAZOLE [Concomitant]
     Active Substance: PANTOPRAZOLE
  8. ALBUTEROL HFA INH (200 PUFFS) 6.7GM [Concomitant]
  9. JANUM ET 50/1000MG TABLETS [Concomitant]
  10. VITAMIN D2 2000 UNIT TABLETS [Concomitant]

REACTIONS (1)
  - Death [None]
